FAERS Safety Report 8869929 (Version 1)
Quarter: 2012Q4

REPORT INFORMATION
  Report Type: 
  Country: US (occurrence: US)
  Receive Date: 20121026
  Receipt Date: 20121026
  Transmission Date: 20130627
  Serious: No
  Sender: FDA-Public Use
  Company Number: US-AMGEN-USASP2012045887

PATIENT
  Age: 60 Year
  Sex: Female
  Weight: 54.42 kg

DRUGS (6)
  1. ENBREL [Suspect]
     Indication: PRODUCT USED FOR UNKNOWN INDICATION
     Dosage: 50 mg/ml, qwk
     Route: 058
  2. PRAVASTATIN [Concomitant]
     Dosage: 20 mg, UNK
  3. HYDROXYCHLOROQUINE [Concomitant]
     Dosage: 200 mg, UNK
  4. FISH OIL [Concomitant]
  5. CALCIUM [Concomitant]
     Dosage: 500 mg, UNK
  6. ASPIRIN LOW [Concomitant]
     Dosage: 81 mg, UNK

REACTIONS (1)
  - Cystitis [Unknown]
